FAERS Safety Report 25177620 (Version 4)
Quarter: 2025Q2

REPORT INFORMATION
  Report Type: Report from Study
  Country: GB (occurrence: GB)
  Receive Date: 20250409
  Receipt Date: 20250529
  Transmission Date: 20250717
  Serious: Yes (Other)
  Sender: ROCHE
  Company Number: GB-ROCHE-10000247719

PATIENT
  Sex: Female

DRUGS (9)
  1. TOCILIZUMAB [Suspect]
     Active Substance: TOCILIZUMAB
     Indication: Rheumatoid arthritis
     Route: 058
     Dates: start: 20210606
  2. ACETAMINOPHEN [Concomitant]
     Active Substance: ACETAMINOPHEN
  3. THYROXINE [Concomitant]
     Active Substance: LEVOTHYROXINE
  4. METHIONINE [Concomitant]
     Active Substance: METHIONINE
  5. RAMIPRIL [Concomitant]
     Active Substance: RAMIPRIL
  6. GAVISCON [Concomitant]
     Active Substance: ALUMINUM HYDROXIDE\MAGNESIUM CARBONATE
  7. LANSOPRAZOLE [Concomitant]
     Active Substance: LANSOPRAZOLE
  8. VITAMIN D [Concomitant]
     Active Substance: VITAMIN D NOS
  9. VITAMIN C [Concomitant]
     Active Substance: ASCORBIC ACID

REACTIONS (16)
  - Malaise [Not Recovered/Not Resolved]
  - Dyspnoea [Not Recovered/Not Resolved]
  - Pulmonary oedema [Not Recovered/Not Resolved]
  - Pain [Not Recovered/Not Resolved]
  - Pain [Unknown]
  - Pain in extremity [Unknown]
  - Mass [Unknown]
  - Ill-defined disorder [Unknown]
  - Fall [Unknown]
  - Peripheral swelling [Unknown]
  - Cellulitis [Unknown]
  - Rash [Unknown]
  - Headache [Unknown]
  - Skin exfoliation [Unknown]
  - Skin disorder [Unknown]
  - Hand deformity [Unknown]
